FAERS Safety Report 7653458-9 (Version None)
Quarter: 2011Q3

REPORT INFORMATION
  Report Type: 
  Country: None (occurrence: None)
  Receive Date: 20110803
  Receipt Date: 20110801
  Transmission Date: 20111222
  Serious: No
  Sender: FDA-Public Use
  Company Number: US-PFIZER INC-2011137020

PATIENT
  Sex: Female
  Weight: 75 kg

DRUGS (6)
  1. LYRICA [Suspect]
     Indication: PAIN IN EXTREMITY
  2. EVISTA [Concomitant]
     Indication: CARDIAC DISORDER
     Dosage: 60 MG, DAILY
     Route: 048
  3. METFORMIN [Concomitant]
     Indication: DIABETES MELLITUS
     Dosage: 1000 MG, 2X/DAY
     Route: 048
  4. LYRICA [Suspect]
     Indication: MYALGIA
     Dosage: 50 MG, 2X/DAY
     Route: 048
     Dates: start: 20110401
  5. LISINOPRIL [Concomitant]
     Indication: HYPERTENSION
     Dosage: 20 MG, UNK
     Route: 048
  6. ZETIA [Concomitant]
     Indication: BLOOD CHOLESTEROL ABNORMAL
     Dosage: 10 MG, UNK
     Route: 048

REACTIONS (1)
  - ALOPECIA [None]
